FAERS Safety Report 11595947 (Version 1)
Quarter: 2015Q4

REPORT INFORMATION
  Report Type: Spontaneous
  Country: IT (occurrence: None)
  Receive Date: 20151002
  Receipt Date: 20151002
  Transmission Date: 20160304
  Serious: Yes (Hospitalization)
  Sender: FDA-Public Use
  Company Number: 2015PL000218

PATIENT
  Age: 65 Year
  Sex: Male

DRUGS (1)
  1. ALLOPURINOL (ALLOPURINOL) TABLET [Suspect]
     Active Substance: ALLOPURINOL
     Indication: HYPERURICAEMIA

REACTIONS (5)
  - Pericarditis [None]
  - Lung disorder [None]
  - Renal impairment [None]
  - Drug reaction with eosinophilia and systemic symptoms [None]
  - Hepatic function abnormal [None]
